FAERS Safety Report 5415479-6 (Version None)
Quarter: 2007Q3

REPORT INFORMATION
  Report Type: 
  Country: None (occurrence: None)
  Receive Date: 20070815
  Receipt Date: 20070803
  Transmission Date: 20080115
  Serious: Yes (Other)
  Sender: FDA-Public Use
  Company Number: GB-ROCHE-510842

PATIENT
  Age: 33 Year
  Sex: Female
  Weight: 108 kg

DRUGS (2)
  1. XENICAL [Suspect]
     Indication: OBESITY
     Route: 048
     Dates: start: 20070430
  2. UNSPECIFIED DRUG [Concomitant]
     Route: 048
     Dates: start: 20070201, end: 20070701

REACTIONS (1)
  - CONVULSION [None]
